FAERS Safety Report 16820154 (Version 1)
Quarter: 2019Q3

REPORT INFORMATION
  Report Type: Spontaneous
  Country: US (occurrence: US)
  Receive Date: 20190918
  Receipt Date: 20190918
  Transmission Date: 20191005
  Serious: Yes (Other)
  Sender: FDA-Public Use
  Company Number: US-CIPLA LTD.-2019US06339

PATIENT

DRUGS (1)
  1. TOPIRAMATE. [Suspect]
     Active Substance: TOPIRAMATE
     Indication: BACK PAIN
     Dosage: UNK
     Route: 065

REACTIONS (2)
  - Withdrawal syndrome [Recovered/Resolved]
  - Drug dependence [Unknown]
